FAERS Safety Report 7055069-5 (Version None)
Quarter: 2010Q4

REPORT INFORMATION
  Report Type: 
  Country: None (occurrence: None)
  Receive Date: 20101021
  Receipt Date: 20101012
  Transmission Date: 20110411
  Serious: Yes (Other)
  Sender: FDA-Public Use
  Company Number: US-JNJFOC-20101003544

PATIENT
  Sex: Male
  Weight: 77.11 kg

DRUGS (4)
  1. DURAGESIC-100 [Suspect]
     Indication: PAIN
     Route: 062
  2. DURAGESIC-100 [Suspect]
     Route: 062
  3. DURAGESIC-100 [Suspect]
     Route: 062
  4. NAPROXEN [Concomitant]
     Indication: LEG AMPUTATION
     Route: 048

REACTIONS (14)
  - ABDOMINAL DISCOMFORT [None]
  - ABNORMAL LOSS OF WEIGHT [None]
  - ARTHRITIS [None]
  - CHILLS [None]
  - CORNEAL TRANSPLANT [None]
  - EYE INJURY [None]
  - GENERAL PHYSICAL HEALTH DETERIORATION [None]
  - HYPERHIDROSIS [None]
  - INAPPROPRIATE SCHEDULE OF DRUG ADMINISTRATION [None]
  - MALAISE [None]
  - NAUSEA [None]
  - PRODUCT QUALITY ISSUE [None]
  - VOMITING [None]
  - WITHDRAWAL SYNDROME [None]
